FAERS Safety Report 22204325 (Version 2)
Quarter: 2024Q4

REPORT INFORMATION
  Report Type: Spontaneous
  Country: BR (occurrence: BR)
  Receive Date: 20230412
  Receipt Date: 20241018
  Transmission Date: 20250115
  Serious: Yes (Other)
  Sender: CELLTRION
  Company Number: BR-CELLTRION INC.-2023BR007411

PATIENT

DRUGS (4)
  1. INFLIXIMAB [Suspect]
     Active Substance: INFLIXIMAB
     Indication: Rheumatoid arthritis
     Dosage: 3 AMPOULES EVERY 3 MONTHS
     Route: 042
     Dates: start: 20221124
  2. CIMETIDINE [Concomitant]
     Active Substance: CIMETIDINE
     Indication: Blood cholesterol
     Dosage: 1 CAPSULE PER DAY
     Route: 048
     Dates: start: 2019
  3. DORZOLAMIDE [Concomitant]
     Active Substance: DORZOLAMIDE
     Indication: Glaucoma
     Dosage: 2 DROPS EYE PER DAY
     Dates: start: 2017
  4. TIMOLOL [Concomitant]
     Active Substance: TIMOLOL\TIMOLOL MALEATE
     Indication: Glaucoma
     Dosage: 2 DROPS EYE PER DAY
     Dates: start: 2017

REACTIONS (10)
  - Dysstasia [Not Recovered/Not Resolved]
  - Neck pain [Not Recovered/Not Resolved]
  - Arthralgia [Not Recovered/Not Resolved]
  - Insomnia [Not Recovered/Not Resolved]
  - Pain [Not Recovered/Not Resolved]
  - Pain in extremity [Not Recovered/Not Resolved]
  - Intentional dose omission [Unknown]
  - Intentional product use issue [Unknown]
  - Therapeutic response changed [Unknown]
  - Therapeutic response shortened [Unknown]
